FAERS Safety Report 5641685-1 (Version None)
Quarter: 2008Q1

REPORT INFORMATION
  Report Type: 
  Country: None (occurrence: None)
  Receive Date: 20080131
  Receipt Date: 20071009
  Transmission Date: 20080703
  Serious: No
  Sender: FDA-Public Use
  Company Number: PHEH2007US13402

PATIENT
  Age: 70 Year
  Sex: Male
  Weight: 69.4 kg

DRUGS (7)
  1. TEKTURNA [Suspect]
     Dosage: 150 UNK, QD, ORAL
     Route: 048
     Dates: start: 20070613, end: 20070713
  2. TOPROL-XL [Concomitant]
  3. ASA     (CETYLSALICYLIC ACID) [Concomitant]
  4. LIPITOR [Concomitant]
  5. DIOVAN [Concomitant]
  6. MAXZIDE [Concomitant]
  7. DYNACIRC [Concomitant]

REACTIONS (1)
  - BLOOD PRESSURE INCREASED [None]
